FAERS Safety Report 5953266-0 (Version None)
Quarter: 2008Q4

REPORT INFORMATION
  Report Type: 
  Country: None (occurrence: None)
  Receive Date: 20081114
  Receipt Date: 20081107
  Transmission Date: 20090506
  Serious: Yes (Hospitalization)
  Sender: FDA-Public Use
  Company Number: PHEH2008US08890

PATIENT
  Sex: Female
  Weight: 64.853 kg

DRUGS (12)
  1. RECLAST [Suspect]
     Indication: OSTEOPOROSIS
     Dosage: 5 MG, UNK
     Dates: start: 20080915, end: 20080915
  2. FIORICET [Concomitant]
  3. LEVOTHYROXINE SODIUM [Concomitant]
     Dosage: 0.025 MG, QD
  4. VAGIFEM [Concomitant]
     Dosage: 0.025 MG, TIW
  5. LORAZEPAM [Concomitant]
     Dosage: 0.5 MG, QHS
  6. TOPROL-XL [Concomitant]
     Dosage: 25 MG, QD
     Route: 048
  7. TRAMADOL HCL [Concomitant]
     Dosage: 50 MG, QD
     Route: 048
  8. AMBIEN [Concomitant]
     Dosage: HALF A 5 MG TAB PO HS
  9. ASPIRIN [Concomitant]
     Dosage: 81 MG, QD
  10. CALCIUM CITRATE W/VITAMIN D NOS [Concomitant]
  11. GLUCOSAMINE W/CHONDROITIN [Concomitant]
  12. MULTIVITAMIN ^LAPPE^ [Concomitant]

REACTIONS (2)
  - DIZZINESS [None]
  - HYPOTENSION [None]
